FAERS Safety Report 11814128 (Version 6)
Quarter: 2016Q4

REPORT INFORMATION
  Report Type: Report from Study
  Country: US (occurrence: US)
  Receive Date: 20151209
  Receipt Date: 20161227
  Transmission Date: 20170206
  Serious: Yes (Hospitalization, Other)
  Sender: FDA-Public Use
  Company Number: US-BAYER-2014-143086

PATIENT
  Age: 65 Year
  Sex: Female
  Weight: 86.17 kg

DRUGS (13)
  1. ADEMPAS [Suspect]
     Active Substance: RIOCIGUAT
     Indication: COR PULMONALE CHRONIC
     Dosage: 1.5 MG, TID
     Route: 048
  2. LETAIRIS [Suspect]
     Active Substance: AMBRISENTAN
     Dosage: UNK
     Dates: end: 2015
  3. APIXABAN [Concomitant]
     Active Substance: APIXABAN
  4. ADEMPAS [Suspect]
     Active Substance: RIOCIGUAT
     Indication: COR PULMONALE CHRONIC
     Dosage: 1 MG, TID
     Route: 048
     Dates: start: 20140722
  5. ADEMPAS [Suspect]
     Active Substance: RIOCIGUAT
     Indication: COR PULMONALE CHRONIC
     Dosage: 0.5 MG, TID
     Route: 048
  6. LASIX [Concomitant]
     Active Substance: FUROSEMIDE
  7. ADEMPAS [Suspect]
     Active Substance: RIOCIGUAT
     Indication: COR PULMONALE CHRONIC
     Dosage: 1 MG, TID
     Route: 048
     Dates: start: 20140723
  8. ADEMPAS [Suspect]
     Active Substance: RIOCIGUAT
     Indication: COR PULMONALE CHRONIC
     Dosage: 1.5 MG, TID
     Route: 048
  9. ADEMPAS [Suspect]
     Active Substance: RIOCIGUAT
     Indication: PULMONARY ARTERIAL HYPERTENSION
     Dosage: 1 MG, TID
     Route: 048
     Dates: start: 20141014
  10. ADEMPAS [Suspect]
     Active Substance: RIOCIGUAT
     Indication: COR PULMONALE CHRONIC
     Dosage: 1.5 MG, TID
     Route: 048
  11. ADEMPAS [Suspect]
     Active Substance: RIOCIGUAT
     Indication: PULMONARY HYPERTENSION
     Dosage: 1.5 MG, TID
     Route: 048
     Dates: start: 20141012
  12. ADEMPAS [Suspect]
     Active Substance: RIOCIGUAT
     Indication: COR PULMONALE CHRONIC
     Dosage: 1 MG, TID
     Route: 048
     Dates: start: 20140723
  13. ADEMPAS [Suspect]
     Active Substance: RIOCIGUAT
     Indication: COR PULMONALE CHRONIC
     Dosage: 1 MG, TID
     Route: 048
     Dates: start: 20150707

REACTIONS (40)
  - Pneumonia [None]
  - Dyspnoea [None]
  - Abdominal discomfort [None]
  - Dizziness [Unknown]
  - Pulmonary arterial hypertension [None]
  - Hospitalisation [None]
  - Hospitalisation [Unknown]
  - Drug ineffective [None]
  - Dry mouth [None]
  - Cough [Unknown]
  - Walking distance test abnormal [Unknown]
  - Abdominal pain upper [None]
  - Peripheral swelling [Not Recovered/Not Resolved]
  - Cough [None]
  - Scab [None]
  - Skin abrasion [None]
  - Nasopharyngitis [Unknown]
  - Oedema [Unknown]
  - Diarrhoea [None]
  - Mitral valve replacement [Unknown]
  - Chest discomfort [Unknown]
  - Fatigue [None]
  - Dizziness [None]
  - Oxygen supplementation [None]
  - Pulmonary oedema [None]
  - Peripheral swelling [None]
  - Nausea [None]
  - Dyspnoea [None]
  - Oedema peripheral [Unknown]
  - Hypoaesthesia [Unknown]
  - Chest discomfort [None]
  - Abnormal weight gain [Unknown]
  - Fluid retention [Unknown]
  - Headache [None]
  - Dyspnoea [Unknown]
  - Oedema [None]
  - Constipation [Not Recovered/Not Resolved]
  - Accident [None]
  - Generalised oedema [Unknown]
  - Headache [Unknown]

NARRATIVE: CASE EVENT DATE: 20140924
